FAERS Safety Report 18609203 (Version 1)
Quarter: 2020Q4

REPORT INFORMATION
  Report Type: Spontaneous
  Country: US (occurrence: US)
  Receive Date: 20201214
  Receipt Date: 20201214
  Transmission Date: 20210114
  Serious: No
  Sender: FDA-Public Use
  Company Number: US-GILEAD-2020-0508039

PATIENT
  Sex: Male

DRUGS (11)
  1. EPCLUSA [Suspect]
     Active Substance: SOFOSBUVIR\VELPATASVIR
     Indication: CHRONIC HEPATITIS C
     Dosage: 1 DOSAGE FORM, QD
     Route: 048
     Dates: start: 20201117
  2. HYDROCORTISONE. [Concomitant]
     Active Substance: HYDROCORTISONE
  3. GABAPENTIN. [Concomitant]
     Active Substance: GABAPENTIN
  4. LOSARTAN. [Concomitant]
     Active Substance: LOSARTAN
  5. SILDENAFIL. [Concomitant]
     Active Substance: SILDENAFIL
  6. DULCOLAX (BISACODYL) [Concomitant]
     Active Substance: BISACODYL
  7. NARCAN [Concomitant]
     Active Substance: NALOXONE HYDROCHLORIDE
  8. PREDNISONE. [Concomitant]
     Active Substance: PREDNISONE
  9. OXYCODONE HYDROCHLORIDE. [Concomitant]
     Active Substance: OXYCODONE HYDROCHLORIDE
  10. DICYCLOMINE [Concomitant]
     Active Substance: DICYCLOMINE HYDROCHLORIDE
  11. TAMSULOSIN [Concomitant]
     Active Substance: TAMSULOSIN

REACTIONS (1)
  - Headache [Recovered/Resolved]
